FAERS Safety Report 4499832-3 (Version None)
Quarter: 2004Q4

REPORT INFORMATION
  Report Type: 
  Country: None (occurrence: None)
  Receive Date: 20041112
  Receipt Date: 20041103
  Transmission Date: 20050328
  Serious: Yes (Hospitalization)
  Sender: FDA-Public Use
  Company Number: US-AMGEN-PRA098032

PATIENT
  Sex: Female

DRUGS (5)
  1. NEULASTA [Suspect]
     Indication: CHEMOTHERAPY
     Route: 058
     Dates: start: 20041008, end: 20041008
  2. ACCUPRIL [Suspect]
  3. INDAPAMIDE [Suspect]
  4. ADRIAMYCIN PFS [Suspect]
     Dates: start: 20041007, end: 20041007
  5. CYTOXAN [Suspect]
     Dates: start: 20041007, end: 20041007

REACTIONS (4)
  - DIZZINESS [None]
  - ELECTROCARDIOGRAM ST-T CHANGE [None]
  - HYPOTENSION [None]
  - PALPITATIONS [None]
